FAERS Safety Report 4441186-2 (Version None)
Quarter: 2004Q3

REPORT INFORMATION
  Report Type: 
  Country: None (occurrence: None)
  Receive Date: 20040728
  Receipt Date: 20040315
  Transmission Date: 20050211
  Serious: No
  Sender: FDA-Public Use
  Company Number: US_0403101685

PATIENT
  Age: 16 Year
  Weight: 64 kg

DRUGS (1)
  1. STRATTERA [Suspect]
     Dosage: 25 MG DAY

REACTIONS (1)
  - NIGHT SWEATS [None]
